FAERS Safety Report 15650644 (Version 1)
Quarter: 2018Q4

REPORT INFORMATION
  Report Type: Spontaneous
  Country: GB (occurrence: GB)
  Receive Date: 20181123
  Receipt Date: 20181123
  Transmission Date: 20190205
  Serious: Yes (Other)
  Sender: FDA-Public Use
  Company Number: GB-ACCORD-092995

PATIENT
  Age: 75 Year
  Sex: Male
  Weight: 68 kg

DRUGS (7)
  1. ATORVASTATIN/ATORVASTATIN CALCIUM [Suspect]
     Active Substance: ATORVASTATIN CALCIUM
     Indication: PRODUCT USED FOR UNKNOWN INDICATION
     Dates: start: 20170817
  2. RANITIDINE. [Concomitant]
     Active Substance: RANITIDINE
     Dosage: EVERY DAY.
     Dates: start: 20170719
  3. UNIPHYLLIN [Concomitant]
     Active Substance: THEOPHYLLINE ANHYDROUS
     Dosage: AS DIRECTED.
     Dates: start: 20170719
  4. FLUTICASONE. [Concomitant]
     Active Substance: FLUTICASONE
     Dosage: 1-2 SPRAYS IN EACH NOSTRIL ONCE DAILY
     Route: 045
     Dates: start: 20170719
  5. VENTOLIN [Concomitant]
     Active Substance: ALBUTEROL SULFATE
     Dates: start: 20170719
  6. MONTELUKAST [Concomitant]
     Active Substance: MONTELUKAST SODIUM
     Indication: ASTHMA
     Dosage: IN THE EVENING
     Dates: start: 20170719
  7. FLUTICASONE. [Concomitant]
     Active Substance: FLUTICASONE
     Dates: start: 20170719

REACTIONS (1)
  - Gout [Recovered/Resolved]
